FAERS Safety Report 24618232 (Version 1)
Quarter: 2024Q4

REPORT INFORMATION
  Report Type: Spontaneous
  Country: TR (occurrence: TR)
  Receive Date: 20241114
  Receipt Date: 20241114
  Transmission Date: 20250115
  Serious: Yes (Other)
  Sender: TEVA
  Company Number: TR-TEVA-VS-3263563

PATIENT
  Age: 32 Year
  Sex: Female
  Weight: 88 kg

DRUGS (4)
  1. COPAXONE [Suspect]
     Active Substance: GLATIRAMER ACETATE
     Indication: Multiple sclerosis
     Dosage: TIME INTERVAL: 0.33333333 WEEKS
     Route: 058
     Dates: start: 20240626, end: 20241023
  2. RILEPTID [Concomitant]
     Indication: Product used for unknown indication
     Dosage: 1X1
     Route: 048
  3. CYANOCOBALAMIN [Concomitant]
     Active Substance: CYANOCOBALAMIN
     Indication: Product used for unknown indication
     Route: 030
  4. Misol [Concomitant]
     Indication: Product used for unknown indication
     Dosage: 1X1
     Route: 048

REACTIONS (6)
  - Nausea [Recovered/Resolved]
  - Cyanosis [Recovered/Resolved]
  - Presyncope [Recovered/Resolved]
  - Hypoaesthesia [Recovered/Resolved]
  - Dyspnoea [Recovered/Resolved]
  - Urticaria [Recovered/Resolved]

NARRATIVE: CASE EVENT DATE: 20241023
